FAERS Safety Report 9325421 (Version 2)
Quarter: 2013Q2

REPORT INFORMATION
  Report Type: Spontaneous
  Country: US (occurrence: US)
  Receive Date: 20130604
  Receipt Date: 20130618
  Transmission Date: 20140414
  Serious: Yes (Hospitalization, Other)
  Sender: FDA-Public Use
  Company Number: US-AMGEN-USASP2013038528

PATIENT
  Age: 84 Year
  Sex: Female
  Weight: 58.5 kg

DRUGS (16)
  1. PROLIA [Suspect]
     Indication: OSTEOPOROSIS POSTMENOPAUSAL
     Dosage: 60 MG/ML, Q6MO
     Route: 058
     Dates: start: 20120516
  2. PROLIA [Suspect]
  3. ACETYLCYSTEINE [Concomitant]
     Dosage: 600 MG, BID FOR 2 DAYS PRN
     Route: 048
     Dates: start: 20130220
  4. DEXAMETHASONE [Concomitant]
     Dosage: 0.25 MG, 1 DAY PRIOR TO CHEMO. 3 DAYS AFTER
     Route: 048
     Dates: start: 20130424
  5. LIPITOR [Concomitant]
     Dosage: 40 MG, QD
     Route: 048
     Dates: start: 20121017
  6. MAGNESIUM OXIDE [Concomitant]
     Dosage: 400 MG, TID
     Route: 048
     Dates: start: 20121017
  7. NEXIUM                             /01479302/ [Concomitant]
     Dosage: 40 MG, QD
     Route: 048
     Dates: start: 20121217
  8. NYSTATIN [Concomitant]
     Dosage: 100000 UNIT/G, APPLY TO RASH BID PRN
     Route: 061
     Dates: start: 20120621
  9. PERCOCET-5 [Concomitant]
     Indication: PAIN
     Dosage: UNK UNK, Q6H, PRN
     Route: 048
     Dates: start: 20130304
  10. PROAIR                             /00139502/ [Concomitant]
     Dosage: 90 MUG, 2 PUFFS Q4H PRN
     Dates: start: 20130422
  11. PROCHLORPERAZINE [Concomitant]
     Indication: NAUSEA
     Dosage: 10 MG, Q6H, PRN
     Route: 048
     Dates: start: 20130424
  12. SPIRONOLACTONE [Concomitant]
     Dosage: 50 MG, QD
     Route: 048
     Dates: start: 20121114
  13. TIAZAC                             /00489702/ [Concomitant]
     Dosage: 120 MG, QD, QHS
     Route: 048
     Dates: start: 20121114
  14. TIMOLOL [Concomitant]
     Dosage: UNK UNK, QHS, ONE DROP EACH EYE
     Dates: start: 20121017
  15. ZOFRAN                             /00955301/ [Concomitant]
     Indication: NAUSEA
     Dosage: 4 MG, Q8H, PRN
     Route: 048
     Dates: start: 20130222
  16. FLUZONE                            /00780601/ [Concomitant]
     Dosage: UNK
     Dates: start: 20120926

REACTIONS (10)
  - Lymphoma [Unknown]
  - Malignant neoplasm of uterine adnexa [Unknown]
  - Ovarian cancer metastatic [Not Recovered/Not Resolved]
  - Fall [Recovered/Resolved]
  - Rib fracture [Recovered/Resolved]
  - Skin ulcer [Unknown]
  - Magnesium metabolism disorder [Unknown]
  - Abdominal pain [Unknown]
  - Peritoneal disorder [Unknown]
  - Pneumonia bacterial [Unknown]
